FAERS Safety Report 5627519-X (Version None)
Quarter: 2008Q1

REPORT INFORMATION
  Report Type: 
  Country: None (occurrence: None)
  Receive Date: 20080215
  Receipt Date: 20071106
  Transmission Date: 20080703
  Serious: Yes (Hospitalization)
  Sender: FDA-Public Use
  Company Number: A0691750A

PATIENT
  Age: 70 Year
  Sex: Male

DRUGS (8)
  1. COREG CR [Suspect]
     Dosage: 80MG PER DAY
     Route: 048
     Dates: start: 20071001
  2. COREG [Suspect]
     Dosage: 12.5MG TWICE PER DAY
     Route: 048
     Dates: end: 20071001
  3. NORVASC [Concomitant]
  4. ALLOPURINOL [Concomitant]
  5. LIPITOR [Concomitant]
  6. FUROSEMIDE [Concomitant]
  7. ISOSORBID MONONITRATE [Concomitant]
  8. PRINIVIL [Concomitant]

REACTIONS (3)
  - DIZZINESS [None]
  - DYSPNOEA [None]
  - HYPOTENSION [None]
